FAERS Safety Report 9729567 (Version 1)
Quarter: 2013Q4

REPORT INFORMATION
  Report Type: Spontaneous
  Country: GB (occurrence: GB)
  Receive Date: 20131204
  Receipt Date: 20131204
  Transmission Date: 20140711
  Serious: Yes (Other)
  Sender: FDA-Public Use
  Company Number: GB-TEVA-446222ISR

PATIENT
  Age: 36 Year
  Sex: Female
  Weight: 76 kg

DRUGS (7)
  1. VENLAFAXINE [Suspect]
     Indication: DEPRESSION
     Dosage: 37.5 MILLIGRAM DAILY;
     Route: 048
     Dates: end: 20121211
  2. VENLAFAXINE [Suspect]
     Indication: DEPRESSION
     Dosage: 75 MILLIGRAM DAILY;
     Route: 048
     Dates: start: 20121211, end: 20130805
  3. VENLAFAXINE [Suspect]
     Indication: DEPRESSION
     Dosage: 150 MILLIGRAM DAILY; 75MG TWICE DAILY
     Route: 048
     Dates: start: 20130805, end: 20130920
  4. VENLAFAXINE [Suspect]
     Indication: DEPRESSION
     Dosage: 75MG ONCE DAILY AND ALTERNATE DAYS 75MG TWICE DAILY.
     Route: 048
     Dates: start: 20130920, end: 20131018
  5. LEVOTHYROXINE [Concomitant]
  6. TOLTERODINE [Concomitant]
  7. NEXPLANON 68MG IMPLANT FOR SUBDERMAL USE [Concomitant]
     Indication: CONTRACEPTION

REACTIONS (15)
  - Suicide attempt [Recovered/Resolved]
  - Weight increased [Not Recovered/Not Resolved]
  - Fatigue [Recovering/Resolving]
  - Drug withdrawal headache [Not Recovered/Not Resolved]
  - Nausea [Not Recovered/Not Resolved]
  - Feeling abnormal [Not Recovered/Not Resolved]
  - Muscle twitching [Not Recovered/Not Resolved]
  - Tearfulness [Not Recovered/Not Resolved]
  - Emotional disorder [Not Recovered/Not Resolved]
  - Sensory disturbance [Not Recovered/Not Resolved]
  - Drug withdrawal syndrome [Not Recovered/Not Resolved]
  - Feeling of body temperature change [Not Recovered/Not Resolved]
  - Disturbance in attention [Unknown]
  - Condition aggravated [Unknown]
  - Hypoaesthesia [Unknown]
